FAERS Safety Report 5853658-4 (Version None)
Quarter: 2008Q3

REPORT INFORMATION
  Report Type: 
  Country: None (occurrence: None)
  Receive Date: 20080822
  Receipt Date: 20080819
  Transmission Date: 20090109
  Serious: Yes (Life-Threatening, Hospitalization)
  Sender: FDA-Public Use
  Company Number: FR-JNJFOC-20080803819

PATIENT
  Sex: Male

DRUGS (7)
  1. DURAGESIC-100 [Suspect]
     Route: 062
  2. DURAGESIC-100 [Suspect]
     Indication: DRUG USE FOR UNKNOWN INDICATION
     Route: 062
  3. NORFLOXACIN [Concomitant]
     Route: 048
  4. AMLOR [Concomitant]
     Route: 048
  5. DITROPAN [Concomitant]
     Route: 048
  6. PREVISCAN [Concomitant]
     Route: 048
  7. XATRAL [Concomitant]
     Route: 048

REACTIONS (5)
  - ACCIDENTAL OVERDOSE [None]
  - BRONCHIAL OBSTRUCTION [None]
  - CARDIAC FAILURE [None]
  - DYSPNOEA [None]
  - ORTHOPNOEA [None]
